FAERS Safety Report 9868357 (Version 2)
Quarter: 2014Q1

REPORT INFORMATION
  Report Type: Spontaneous
  Country: US (occurrence: US)
  Receive Date: 20140204
  Receipt Date: 20140226
  Transmission Date: 20141002
  Serious: No
  Sender: FDA-Public Use
  Company Number: US-B.I. PHARMACEUTICALS,INC./RIDGEFIELD-2014-BI-03240BP

PATIENT
  Age: 56 Year
  Sex: Female

DRUGS (3)
  1. CATAPRES TTS [Suspect]
     Indication: HYPERTENSION
     Dosage: FORMULATION: PATCH; DOSE PER APPLICATION AND DAILY DOSE: 7.5MG (0.3)/DAY
     Route: 061
     Dates: end: 20121214
  2. CATAPRES TTS [Suspect]
     Dosage: FORMULATION: PATCH;DOSE PER APPLICATION AND DAILY DOSE: 2.5MG(0.1MG/DAY)
     Route: 061
     Dates: start: 201212, end: 201303
  3. TRIBENZOR [Concomitant]
     Indication: HYPERTENSION
     Dosage: 20 MG
     Route: 048

REACTIONS (2)
  - Drug ineffective [Recovered/Resolved]
  - Drug ineffective [Unknown]
